FAERS Safety Report 14237092 (Version 1)
Quarter: 2017Q4

REPORT INFORMATION
  Report Type: Report from Study
  Country: US (occurrence: US)
  Receive Date: 20171129
  Receipt Date: 20171129
  Transmission Date: 20180321
  Serious: Yes (Death, Other)
  Sender: FDA-Public Use
  Company Number: US-CELGENEUS-USA-20171108332

PATIENT

DRUGS (5)
  1. REVLIMID [Suspect]
     Active Substance: LENALIDOMIDE
     Dosage: 5-50MG
     Route: 048
  2. MITOXANTRONE [Suspect]
     Active Substance: MITOXANTRONE HYDROCHLORIDE
     Indication: ACUTE MYELOID LEUKAEMIA
     Dosage: 8 MILLIGRAM/SQ. METER
     Route: 041
  3. ETOPOSIDE. [Suspect]
     Active Substance: ETOPOSIDE
     Indication: ACUTE MYELOID LEUKAEMIA
     Dosage: 100 MILLIGRAM/SQ. METER
     Route: 041
  4. CYTARABINE. [Suspect]
     Active Substance: CYTARABINE
     Indication: ACUTE MYELOID LEUKAEMIA
     Dosage: 1000 MILLIGRAM/SQ. METER
     Route: 041
  5. REVLIMID [Suspect]
     Active Substance: LENALIDOMIDE
     Indication: ACUTE MYELOID LEUKAEMIA
     Dosage: 5-50MG
     Route: 048

REACTIONS (26)
  - Vomiting [Unknown]
  - Hyperuricaemia [Unknown]
  - Thrombocytopenia [Unknown]
  - Diarrhoea [Unknown]
  - Pyrexia [Unknown]
  - Hypotension [Unknown]
  - Mucosal inflammation [Unknown]
  - Blood bilirubin increased [Unknown]
  - Decreased appetite [Unknown]
  - Hypoxia [Unknown]
  - Neutropenia [Unknown]
  - Acute myeloid leukaemia [Unknown]
  - Liver function test abnormal [Unknown]
  - Thrombotic thrombocytopenic purpura [Unknown]
  - Nausea [Unknown]
  - Graft versus host disease in gastrointestinal tract [Fatal]
  - Leukopenia [Unknown]
  - Gastrointestinal disorder [Unknown]
  - Hyponatraemia [Unknown]
  - Hypokalaemia [Unknown]
  - Rash [Unknown]
  - Skin disorder [Unknown]
  - Abdominal pain [Unknown]
  - Fatigue [Unknown]
  - Cardiac disorder [Unknown]
  - Anaemia [Unknown]
